FAERS Safety Report 26077218 (Version 1)
Quarter: 2025Q4

REPORT INFORMATION
  Report Type: Spontaneous
  Country: EU (occurrence: EU)
  Receive Date: 20251121
  Receipt Date: 20251121
  Transmission Date: 20260117
  Serious: Yes (Other)
  Sender: GILEAD
  Company Number: None

PATIENT
  Sex: Female

DRUGS (1)
  1. SOFOSBUVIR\VELPATASVIR [Suspect]
     Active Substance: SOFOSBUVIR\VELPATASVIR
     Indication: Hepatitis C
     Dosage: UNK, QD
     Route: 048
     Dates: start: 20250901, end: 20250901

REACTIONS (4)
  - Suicide attempt [Unknown]
  - Somnolence [Unknown]
  - Sluggishness [Unknown]
  - Confusional state [Unknown]

NARRATIVE: CASE EVENT DATE: 20250901
